FAERS Safety Report 25349856 (Version 1)
Quarter: 2025Q2

REPORT INFORMATION
  Report Type: Spontaneous
  Country: CN (occurrence: CN)
  Receive Date: 20250523
  Receipt Date: 20250523
  Transmission Date: 20250716
  Serious: Yes (Other)
  Sender: AMGEN
  Company Number: CN-AMGEN-CHNSP2025099192

PATIENT
  Age: 65 Year
  Sex: Male

DRUGS (4)
  1. XGEVA [Suspect]
     Active Substance: DENOSUMAB
     Indication: Neoplasm malignant
     Route: 058
     Dates: start: 20250429, end: 20250429
  2. SINTILIMAB [Suspect]
     Active Substance: SINTILIMAB
     Indication: Neoplasm malignant
     Route: 040
     Dates: start: 20250426, end: 20250426
  3. CARBOPLATIN [Suspect]
     Active Substance: CARBOPLATIN
     Indication: Neoplasm malignant
     Route: 065
     Dates: start: 20250428, end: 20250428
  4. PEMETREXED DISODIUM [Suspect]
     Active Substance: PEMETREXED DISODIUM
     Indication: Neoplasm malignant
     Route: 065
     Dates: start: 20250426, end: 20250426

REACTIONS (1)
  - Myelosuppression [Recovering/Resolving]

NARRATIVE: CASE EVENT DATE: 20250503
